FAERS Safety Report 12782970 (Version 2)
Quarter: 2017Q2

REPORT INFORMATION
  Report Type: Spontaneous
  Country: US (occurrence: US)
  Receive Date: 20160927
  Receipt Date: 20170407
  Transmission Date: 20170830
  Serious: No
  Sender: FDA-Public Use
  Company Number: US-PFIZER INC-2016444874

PATIENT
  Age: 67 Year
  Sex: Male

DRUGS (1)
  1. IBRANCE [Suspect]
     Active Substance: PALBOCICLIB
     Indication: BREAST CANCER MALE
     Dosage: 125 MG, UNK
     Dates: start: 20160919

REACTIONS (4)
  - Nausea [Unknown]
  - Product use issue [Unknown]
  - Diarrhoea [Unknown]
  - Fatigue [Unknown]
